FAERS Safety Report 10997315 (Version 1)
Quarter: 2015Q2

REPORT INFORMATION
  Report Type: Spontaneous
  Country: US (occurrence: US)
  Receive Date: 20150408
  Receipt Date: 20150408
  Transmission Date: 20150821
  Serious: No
  Sender: FDA-Public Use
  Company Number: US-BANPHARM-20142579

PATIENT
  Age: 61 Year
  Sex: Female
  Weight: 43.09 kg

DRUGS (2)
  1. ALEVE [Suspect]
     Active Substance: NAPROXEN SODIUM
     Indication: MUSCLE STRAIN
     Dosage: 2DF, PRN,
     Route: 048
     Dates: start: 2010
  2. ALEVE [Suspect]
     Active Substance: NAPROXEN SODIUM
     Indication: NEPHROLITHIASIS
     Route: 048

REACTIONS (3)
  - Off label use [Unknown]
  - Drug ineffective [Unknown]
  - Dyspepsia [Unknown]
